FAERS Safety Report 23387125 (Version 1)
Quarter: 2024Q1

REPORT INFORMATION
  Report Type: Spontaneous
  Country: US (occurrence: US)
  Receive Date: 20240110
  Receipt Date: 20240110
  Transmission Date: 20240410
  Serious: Yes (Hospitalization, Other)
  Sender: FDA-Public Use
  Company Number: US-002147023-NVSC2024US000778

PATIENT

DRUGS (25)
  1. PIQRAY [Suspect]
     Active Substance: ALPELISIB
     Indication: Breast cancer stage IV
     Dosage: 300 MG, QD (CYCLE 1)
     Route: 048
     Dates: start: 20231215, end: 20231221
  2. FULVESTRANT [Suspect]
     Active Substance: FULVESTRANT
     Indication: Product used for unknown indication
     Dosage: 500 MG
     Route: 065
     Dates: start: 20231215
  3. TUCATINIB [Suspect]
     Active Substance: TUCATINIB
     Indication: Breast cancer stage IV
     Dosage: 300 MG, BID (CYCLE 1)
     Route: 048
     Dates: start: 20231215, end: 20231221
  4. MACROBID [Concomitant]
     Active Substance: NITROFURANTOIN\NITROFURANTOIN MONOHYDRATE
     Indication: Urinary tract infection
     Dosage: 100 MG, BID
     Route: 048
     Dates: start: 20231201, end: 20231211
  5. METFORMIN [Concomitant]
     Active Substance: METFORMIN HYDROCHLORIDE
     Indication: Blood glucose abnormal
     Dosage: 500 MG, QD
     Route: 048
     Dates: start: 20230912
  6. ASPIRIN [Concomitant]
     Active Substance: ASPIRIN
     Indication: Product used for unknown indication
     Dosage: 81 MG, QD
     Route: 048
     Dates: start: 2018
  7. LEVOTHYROXINE [Concomitant]
     Active Substance: LEVOTHYROXINE
     Indication: Hypothyroidism
     Dosage: 75 UG, QD
     Route: 048
     Dates: start: 1993
  8. PRILOSEC [Concomitant]
     Active Substance: OMEPRAZOLE MAGNESIUM
     Indication: Reflux gastritis
     Dosage: 20 MG, QD
     Route: 048
     Dates: start: 2013
  9. POTASSIUM [Concomitant]
     Active Substance: POTASSIUM
     Indication: Mineral supplementation
     Dosage: 20 MEQ, BID
     Route: 048
     Dates: start: 20231122
  10. CALCIUM [Concomitant]
     Active Substance: CALCIUM
     Indication: Supplementation therapy
     Dosage: 650MG/500 IU
     Route: 065
     Dates: start: 2012
  11. ESTRADIOL [Concomitant]
     Active Substance: ESTRADIOL
     Indication: Vulvovaginal dryness
     Dosage: 10 UG
     Route: 065
     Dates: start: 20231206
  12. ESTRADIOL [Concomitant]
     Active Substance: ESTRADIOL
     Indication: Urinary tract infection
  13. LEVOCETIRIZINE DIHYDROCHLORIDE [Concomitant]
     Active Substance: LEVOCETIRIZINE DIHYDROCHLORIDE
     Indication: Hypersensitivity
     Dosage: 5 MG, QD
     Route: 048
     Dates: start: 1993
  14. MAGNESIUM [Concomitant]
     Active Substance: MAGNESIUM
     Indication: Mineral supplementation
     Dosage: 400 MG, QD
     Route: 048
     Dates: start: 20231120
  15. PROBIOTICS NOS [Concomitant]
     Active Substance: PROBIOTICS NOS
     Indication: Gastrointestinal pain
     Dosage: UNK, QD
     Route: 048
     Dates: start: 2011
  16. NORCO [Concomitant]
     Active Substance: ACETAMINOPHEN\HYDROCODONE BITARTRATE
     Indication: Pain
     Dosage: 325 MG, PRN
     Route: 048
     Dates: start: 202310
  17. SENNA PLUS [Concomitant]
     Active Substance: DOCUSATE SODIUM\SENNOSIDES\SENNOSIDES A AND B
     Indication: Constipation
     Dosage: 8.6-50 MG
     Route: 048
     Dates: start: 20230109
  18. ZOFRAN [Concomitant]
     Active Substance: ONDANSETRON HYDROCHLORIDE
     Indication: Nausea
     Dosage: 8 MG, PRN
     Route: 048
     Dates: start: 20231120
  19. COMPAZINE [Concomitant]
     Active Substance: PROCHLORPERAZINE MALEATE
     Indication: Nausea
     Dosage: 10 MG, PRN
     Route: 048
     Dates: start: 20231218
  20. EMLA [Concomitant]
     Active Substance: LIDOCAINE\PRILOCAINE
     Indication: Vascular device user
     Dosage: UNK
     Route: 065
     Dates: start: 20231110
  21. LIDODERM [Concomitant]
     Active Substance: LIDOCAINE
     Indication: Pain
     Dosage: 700 MG
     Route: 065
     Dates: start: 20231107
  22. IMODIUM [Concomitant]
     Active Substance: LOPERAMIDE HYDROCHLORIDE
     Indication: Diarrhoea
     Dosage: 2 MG, PRN
     Route: 048
     Dates: start: 20231122
  23. AMBIEN [Concomitant]
     Active Substance: ZOLPIDEM TARTRATE
     Indication: Sleep disorder
     Dosage: 5 MG, PRN
     Route: 048
     Dates: start: 20231115
  24. SUDAFED [Concomitant]
     Active Substance: PSEUDOEPHEDRINE HYDROCHLORIDE
     Indication: Hypersensitivity
     Dosage: 1 DOSAGE FORM, PRN
     Route: 048
     Dates: start: 1993
  25. LOMOTIL [Concomitant]
     Active Substance: ATROPINE SULFATE\DIPHENOXYLATE HYDROCHLORIDE
     Indication: Diarrhoea
     Dosage: 2.5 MG, PRN
     Route: 065
     Dates: start: 20231218

REACTIONS (5)
  - Diarrhoea [Unknown]
  - Blood creatinine increased [Not Recovered/Not Resolved]
  - Hypokalaemia [Not Recovered/Not Resolved]
  - Acute kidney injury [Not Recovered/Not Resolved]
  - Rash [Unknown]

NARRATIVE: CASE EVENT DATE: 20231224
